FAERS Safety Report 17897351 (Version 2)
Quarter: 2020Q3

REPORT INFORMATION
  Report Type: Report from Study
  Country: US (occurrence: US)
  Receive Date: 20200615
  Receipt Date: 20200714
  Transmission Date: 20201103
  Serious: Yes (Other)
  Sender: FDA-Public Use
  Company Number: US-GILEAD-2020-0471601

PATIENT
  Age: 74 Year
  Sex: Female
  Weight: 53.06 kg

DRUGS (12)
  1. HYD POL/CPM [Concomitant]
  2. AMBRISENTAN [Suspect]
     Active Substance: AMBRISENTAN
     Indication: PULMONARY ARTERIAL HYPERTENSION
     Dosage: 5 MG, QD
     Route: 065
     Dates: start: 20180125
  3. ESTRADIOL. [Concomitant]
     Active Substance: ESTRADIOL
  4. LORAZEPAM. [Concomitant]
     Active Substance: LORAZEPAM
  5. TRAZODONE [Concomitant]
     Active Substance: TRAZODONE HYDROCHLORIDE
  6. MIRTAZAPINE. [Concomitant]
     Active Substance: MIRTAZAPINE
  7. TYLENOL [Concomitant]
     Active Substance: ACETAMINOPHEN
  8. OMEPRAZOLE. [Concomitant]
     Active Substance: OMEPRAZOLE
  9. RAMELTEON [Concomitant]
     Active Substance: RAMELTEON
  10. AMLODIPINE [Concomitant]
     Active Substance: AMLODIPINE BESYLATE
  11. FENTANYL. [Concomitant]
     Active Substance: FENTANYL
  12. TRAMADOL. [Concomitant]
     Active Substance: TRAMADOL

REACTIONS (1)
  - Dementia Alzheimer^s type [Not Recovered/Not Resolved]
